FAERS Safety Report 16259929 (Version 1)
Quarter: 2019Q2

REPORT INFORMATION
  Report Type: Spontaneous
  Country: US (occurrence: US)
  Receive Date: 20190430
  Receipt Date: 20190430
  Transmission Date: 20190711
  Serious: Yes (Hospitalization)
  Sender: FDA-Public Use
  Company Number: None

PATIENT
  Age: 64 Year
  Sex: Male
  Weight: 109.5 kg

DRUGS (1)
  1. CARBOPLATIN. [Suspect]
     Active Substance: CARBOPLATIN
     Indication: LUNG NEOPLASM MALIGNANT
     Dates: start: 20190328, end: 20190328

REACTIONS (5)
  - Respiratory arrest [None]
  - Pulse absent [None]
  - Dyspnoea [None]
  - Pulseless electrical activity [None]
  - Unresponsive to stimuli [None]

NARRATIVE: CASE EVENT DATE: 20190328
